FAERS Safety Report 20044159 (Version 1)
Quarter: 2021Q4

REPORT INFORMATION
  Report Type: Spontaneous
  Country: JP (occurrence: JP)
  Receive Date: 20211108
  Receipt Date: 20211108
  Transmission Date: 20220304
  Serious: Yes (Hospitalization, Other)
  Sender: FDA-Public Use
  Company Number: JP-UPSHER-SMITH LABORATORIES, LLC-2021USL00770

PATIENT
  Age: 74 Year
  Sex: Male

DRUGS (8)
  1. MEMANTINE HYDROCHLORIDE [Suspect]
     Active Substance: MEMANTINE HYDROCHLORIDE
     Indication: Dementia Alzheimer^s type
     Dosage: 20 MG, 1X/DAY
     Route: 048
     Dates: start: 202103, end: 20210915
  2. URAPIDIL [Concomitant]
     Active Substance: URAPIDIL
     Dosage: 30 MG, 1X/DAY
     Route: 048
     Dates: end: 202109
  3. BEOVA [Concomitant]
     Dosage: 50 MG, 1X/DAY
     Route: 048
     Dates: end: 202109
  4. KRACIE HACHIMIJIOGAN RYO EXTRACT FINE GRANULES [Concomitant]
     Dosage: 6 G
     Route: 048
     Dates: start: 20210421, end: 20210921
  5. URIF [Concomitant]
     Dosage: 8 MG
     Route: 048
     Dates: start: 20200513, end: 20210921
  6. TENELIGLIPTIN [Concomitant]
     Active Substance: TENELIGLIPTIN
     Dosage: 20 MG
     Route: 048
     Dates: end: 20210922
  7. MONTELUKAST [Concomitant]
     Active Substance: MONTELUKAST SODIUM
     Dosage: 10 MG
     Dates: end: 20210919
  8. AMBROXOL HYDROCHLORIDE [Concomitant]
     Active Substance: AMBROXOL HYDROCHLORIDE
     Dosage: 45 MG
     Dates: end: 20210919

REACTIONS (12)
  - Rhabdomyolysis [Recovered/Resolved]
  - Fall [Unknown]
  - Cerebral atrophy [Unknown]
  - Gastrointestinal oedema [Unknown]
  - Dysstasia [Recovered/Resolved]
  - Diarrhoea [Unknown]
  - Liver disorder [Not Recovered/Not Resolved]
  - Blood creatine phosphokinase increased [Recovering/Resolving]
  - Colitis [Unknown]
  - Myoglobin urine present [Not Recovered/Not Resolved]
  - Infection [Unknown]
  - Pyrexia [Recovered/Resolved]

NARRATIVE: CASE EVENT DATE: 20210901
